FAERS Safety Report 5913713-7 (Version None)
Quarter: 2008Q4

REPORT INFORMATION
  Report Type: 
  Country: None (occurrence: None)
  Receive Date: 20081007
  Receipt Date: 20080929
  Transmission Date: 20090506
  Serious: Yes (Death)
  Sender: FDA-Public Use
  Company Number: ENTC2008-0305

PATIENT
  Age: 72 Year
  Sex: Male

DRUGS (1)
  1. STALEVO 100 [Suspect]

REACTIONS (1)
  - COMPLETED SUICIDE [None]
